FAERS Safety Report 9361958 (Version 2)
Quarter: 2013Q3

REPORT INFORMATION
  Report Type: Spontaneous
  Country: US (occurrence: US)
  Receive Date: 20130621
  Receipt Date: 20130725
  Transmission Date: 20140515
  Serious: No
  Sender: FDA-Public Use
  Company Number: US-009507513-1305USA004385

PATIENT
  Age: 64 Year
  Sex: Female
  Weight: 77.98 kg

DRUGS (2)
  1. CLARITIN-D-24 [Suspect]
     Indication: NASAL CONGESTION
     Dosage: 10 MG, ONCE
     Route: 048
     Dates: start: 20130414, end: 20130415
  2. CLARITIN-D-24 [Suspect]
     Indication: SINUS CONGESTION

REACTIONS (1)
  - Insomnia [Recovered/Resolved]
